FAERS Safety Report 7654389-0 (Version None)
Quarter: 2011Q3

REPORT INFORMATION
  Report Type: 
  Country: None (occurrence: None)
  Receive Date: 20110803
  Receipt Date: 20110801
  Transmission Date: 20111222
  Serious: Yes (Other)
  Sender: FDA-Public Use
  Company Number: JP-PFIZER INC-2010174079

PATIENT
  Sex: Female

DRUGS (4)
  1. LYRICA [Suspect]
     Indication: FIBROMYALGIA
     Dosage: 75 MG, 1X/DAY
     Route: 048
     Dates: start: 20101001
  2. CLONAZEPAM [Concomitant]
  3. LYRICA [Suspect]
     Dosage: 75 MG, 2X/DAY
     Route: 048
  4. LYRICA [Suspect]
     Dosage: 25 MG, 2X/DAY
     Route: 048

REACTIONS (5)
  - HEART RATE INCREASED [None]
  - DIZZINESS [None]
  - BLOOD PRESSURE INCREASED [None]
  - SOMNOLENCE [None]
  - VISUAL ACUITY REDUCED [None]
